FAERS Safety Report 25651148 (Version 4)
Quarter: 2025Q4

REPORT INFORMATION
  Report Type: Spontaneous
  Country: US (occurrence: US)
  Receive Date: 20250806
  Receipt Date: 20251112
  Transmission Date: 20260118
  Serious: Yes (Other)
  Sender: PFIZER
  Company Number: US-PFIZER INC-202500155968

PATIENT
  Age: 77 Year
  Sex: Female

DRUGS (3)
  1. IBRANCE [Suspect]
     Active Substance: PALBOCICLIB
     Indication: Breast cancer female
     Dosage: 125MG TABLET, 3WKS ON 1WK OFF
     Route: 048
     Dates: start: 202509
  2. IBRANCE [Suspect]
     Active Substance: PALBOCICLIB
     Indication: Breast cancer stage IV
  3. LEVOTHYROXINE [Concomitant]
     Active Substance: LEVOTHYROXINE
     Dosage: UNK

REACTIONS (13)
  - Dementia [Unknown]
  - Gene mutation [Unknown]
  - Wound haemorrhage [Not Recovered/Not Resolved]
  - Epistaxis [Not Recovered/Not Resolved]
  - Diet refusal [Unknown]
  - Nasal dryness [Unknown]
  - Fatigue [Unknown]
  - Irritable bowel syndrome [Unknown]
  - Gastrooesophageal reflux disease [Unknown]
  - White blood cell disorder [Unknown]
  - Impaired healing [Unknown]
  - Increased tendency to bruise [Unknown]
  - Haemorrhage [Unknown]

NARRATIVE: CASE EVENT DATE: 20251001
